FAERS Safety Report 7079660-5 (Version None)
Quarter: 2010Q4

REPORT INFORMATION
  Report Type: 
  Country: None (occurrence: None)
  Receive Date: 20101102
  Receipt Date: 20101021
  Transmission Date: 20110411
  Serious: Yes (Hospitalization, Other)
  Sender: FDA-Public Use
  Company Number: PHBS2007GB11989

PATIENT
  Age: 7 Year
  Sex: Male

DRUGS (3)
  1. VOLTAREN [Suspect]
     Indication: POSTOPERATIVE CARE
     Route: 054
  2. IBUPROFEN [Suspect]
     Indication: JUVENILE ARTHRITIS
     Dosage: 10 MG/KG, Q8H
  3. INDOMETHACIN [Suspect]
     Dosage: 25 MG, Q12H

REACTIONS (5)
  - BLOOD CREATININE INCREASED [None]
  - BLOOD UREA INCREASED [None]
  - DEHYDRATION [None]
  - PROCEDURAL VOMITING [None]
  - RENAL FAILURE ACUTE [None]
